FAERS Safety Report 7049933-0 (Version None)
Quarter: 2010Q4

REPORT INFORMATION
  Report Type: 
  Country: None (occurrence: None)
  Receive Date: 20101012
  Receipt Date: 20100927
  Transmission Date: 20110411
  Serious: Yes (Hospitalization)
  Sender: FDA-Public Use
  Company Number: 2010P1001668

PATIENT
  Age: 76 Year
  Sex: Male
  Weight: 58.9676 kg

DRUGS (6)
  1. SODIUM BICARBONATE [Suspect]
     Indication: DIARRHOEA
     Dosage: 650 MG; TID; PO
     Route: 048
     Dates: start: 20100825
  2. SODIUM BICARBONATE [Suspect]
     Indication: FLATULENCE
     Dosage: 650 MG; TID; PO
     Route: 048
     Dates: start: 20100825
  3. IMODIUM [Concomitant]
  4. PEPCID [Concomitant]
  5. VITAMINS [Concomitant]
  6. MEDICATIONS UNKNOWN [Concomitant]

REACTIONS (1)
  - COELIAC DISEASE [None]
